FAERS Safety Report 13032448 (Version 8)
Quarter: 2019Q2

REPORT INFORMATION
  Report Type: Report from Study
  Country: US (occurrence: US)
  Receive Date: 20161215
  Receipt Date: 20190607
  Transmission Date: 20190711
  Serious: Yes (Other)
  Sender: FDA-Public Use
  Company Number: US-INCYTE CORPORATION-2016IN007875

PATIENT

DRUGS (17)
  1. JAKAFI [Suspect]
     Active Substance: RUXOLITINIB
     Indication: POLYCYTHAEMIA VERA
     Dosage: NOT SPECIFIED
     Route: 048
     Dates: start: 2011
  2. JAKAFI [Suspect]
     Active Substance: RUXOLITINIB
     Dosage: 15MG QAM 10MG QPM
     Route: 048
     Dates: start: 20150422
  3. JAKAFI [Suspect]
     Active Substance: RUXOLITINIB
     Indication: MYELOFIBROSIS
     Dosage: 25 MG (THREE 5 MG TABLETS EVERY MORNING AND TWO 5 MG TABLETS EVERY EVENING)
     Route: 048
     Dates: start: 20150422
  4. AMOXICILLIN. [Concomitant]
     Active Substance: AMOXICILLIN
     Indication: PRODUCT USED FOR UNKNOWN INDICATION
     Dosage: 500 MILLIGRAM
     Route: 065
  5. JAKAFI [Suspect]
     Active Substance: RUXOLITINIB
     Dosage: 15MG/10MG QAM/QPM
     Route: 048
     Dates: start: 20150422
  6. JAKAFI [Suspect]
     Active Substance: RUXOLITINIB
     Dosage: 15MG  IN THE AM AND 10MG QPM
     Route: 048
     Dates: start: 20150422
  7. JAKAFI [Suspect]
     Active Substance: RUXOLITINIB
     Dosage: 3 TABLETS QAM AND 2 TABLETS QPM
     Route: 048
     Dates: start: 20150421
  8. JAKAFI [Suspect]
     Active Substance: RUXOLITINIB
     Dosage: 3 TABLETS QAM AND 2 TABLETS QPM
     Route: 048
     Dates: start: 20150520
  9. JAKAFI [Suspect]
     Active Substance: RUXOLITINIB
     Dosage: 15MG QAM, 10MG QPM
     Route: 048
     Dates: start: 20150422
  10. METHADONE [Concomitant]
     Active Substance: METHADONE HYDROCHLORIDE
     Indication: PRODUCT USED FOR UNKNOWN INDICATION
     Dosage: 5 MILLIGRAM
     Route: 065
  11. INDERAL [Concomitant]
     Active Substance: PROPRANOLOL HYDROCHLORIDE
     Indication: PRODUCT USED FOR UNKNOWN INDICATION
     Dosage: 80 MILLIGRAM
     Route: 065
  12. JAKAFI [Suspect]
     Active Substance: RUXOLITINIB
     Dosage: 3 TABLETS QAM AND 2 TABLETS QPM
     Route: 048
     Dates: start: 20150421
  13. CYMBALTA [Concomitant]
     Active Substance: DULOXETINE HYDROCHLORIDE
     Indication: PRODUCT USED FOR UNKNOWN INDICATION
     Dosage: 30 MILLIGRAM
     Route: 065
  14. DILAUDID [Concomitant]
     Active Substance: HYDROMORPHONE HYDROCHLORIDE
     Indication: PRODUCT USED FOR UNKNOWN INDICATION
     Dosage: 4 MILLIGRAM
     Route: 065
  15. JAKAFI [Suspect]
     Active Substance: RUXOLITINIB
     Dosage: 25 MG (THREE 5 MG TABLETS EVERY MORNING AND TWO 5 MG TABLETS EVERY EVENING)
     Route: 048
  16. JAKAFI [Suspect]
     Active Substance: RUXOLITINIB
     Dosage: 10 MG MORNING AND 10MG EVENING
     Route: 048
     Dates: start: 20150422
  17. JAKAFI [Suspect]
     Active Substance: RUXOLITINIB
     Dosage: 3 TABLETS QAM AND 2 TABLETS QPM
     Route: 048
     Dates: start: 20150422

REACTIONS (23)
  - Memory impairment [Not Recovered/Not Resolved]
  - Pain in extremity [Unknown]
  - Diarrhoea [Unknown]
  - Hyperhidrosis [Not Recovered/Not Resolved]
  - Pyrexia [Not Recovered/Not Resolved]
  - Decreased activity [Unknown]
  - Feeling hot [Unknown]
  - Pain [Not Recovered/Not Resolved]
  - Rhinorrhoea [Not Recovered/Not Resolved]
  - Asthenia [Not Recovered/Not Resolved]
  - Renal impairment [Not Recovered/Not Resolved]
  - Head discomfort [Not Recovered/Not Resolved]
  - Cough [Not Recovered/Not Resolved]
  - Fatigue [Not Recovered/Not Resolved]
  - Temperature intolerance [Unknown]
  - Musculoskeletal chest pain [Unknown]
  - Lung disorder [Not Recovered/Not Resolved]
  - Neck pain [Not Recovered/Not Resolved]
  - Musculoskeletal pain [Not Recovered/Not Resolved]
  - Back pain [Not Recovered/Not Resolved]
  - Product dose omission [Unknown]
  - Bone pain [Unknown]
  - Arthralgia [Not Recovered/Not Resolved]

NARRATIVE: CASE EVENT DATE: 201504
